FAERS Safety Report 12639309 (Version 1)
Quarter: 2016Q3

REPORT INFORMATION
  Report Type: Spontaneous
  Country: DE (occurrence: DE)
  Receive Date: 20160810
  Receipt Date: 20160810
  Transmission Date: 20161109
  Serious: Yes (Hospitalization)
  Sender: FDA-Public Use
  Company Number: DE-SUN PHARMACEUTICAL INDUSTRIES LTD-2016RR-110888

PATIENT

DRUGS (2)
  1. CEFUROX BASICS 125 MG / 5 ML GRANULAT ZUR HERST [Suspect]
     Active Substance: CEFUROXIME
     Indication: LYMPHADENITIS
     Dosage: 7.5 ML OF SUSPENSION IN THE MORNING, 10 ML IN THE EVENING
     Route: 048
  2. IBUPROFEN. [Concomitant]
     Active Substance: IBUPROFEN
     Indication: PYREXIA
     Dosage: 2.5 ML, TID
     Route: 065

REACTIONS (6)
  - Product physical consistency issue [Unknown]
  - Lymphadenitis [Unknown]
  - Condition aggravated [Unknown]
  - Product taste abnormal [Unknown]
  - Vomiting [Unknown]
  - Therapy cessation [Unknown]

NARRATIVE: CASE EVENT DATE: 20151225
